FAERS Safety Report 23446324 (Version 1)
Quarter: 2024Q1

REPORT INFORMATION
  Report Type: Spontaneous
  Country: JP (occurrence: JP)
  Receive Date: 20240126
  Receipt Date: 20240126
  Transmission Date: 20240409
  Serious: No
  Sender: FDA-Public Use
  Company Number: JP-MSD-M2024-02326

PATIENT
  Age: 86 Year
  Sex: Male

DRUGS (1)
  1. LAGEVRIO [Suspect]
     Active Substance: MOLNUPIRAVIR
     Indication: COVID-19 treatment
     Dosage: 200 MILLIGRAM, BID
     Route: 048
     Dates: start: 202401

REACTIONS (2)
  - Underdose [Unknown]
  - Product prescribing error [Unknown]

NARRATIVE: CASE EVENT DATE: 20240101
